FAERS Safety Report 6788316-5 (Version None)
Quarter: 2010Q2

REPORT INFORMATION
  Report Type: 
  Country: None (occurrence: None)
  Receive Date: 20100623
  Receipt Date: 20080229
  Transmission Date: 20101027
  Serious: Yes (Other)
  Sender: FDA-Public Use
  Company Number: US-PFIZER INC-2008009142

PATIENT
  Sex: Female
  Weight: 57 kg

DRUGS (3)
  1. DEPO-PROVERA SUSPENSION/INJ [Suspect]
     Indication: CONTRACEPTION
     Dosage: FIRST INJECTION
     Route: 030
     Dates: start: 20070705, end: 20070705
  2. DEPO-PROVERA SUSPENSION/INJ [Suspect]
     Route: 030
     Dates: start: 20070926, end: 20070926
  3. DEPO-PROVERA SUSPENSION/INJ [Suspect]
     Dosage: THIRD INJECTION
     Route: 030
     Dates: start: 20071219, end: 20071219

REACTIONS (2)
  - DRUG INEFFECTIVE [None]
  - UNINTENDED PREGNANCY [None]
